FAERS Safety Report 5023416-1 (Version None)
Quarter: 2006Q2

REPORT INFORMATION
  Report Type: 
  Country: None (occurrence: None)
  Receive Date: 20060606
  Receipt Date: 20060524
  Transmission Date: 20061013
  Serious: No
  Sender: FDA-Public Use
  Company Number: E2020-00088-SPO-JP

PATIENT
  Age: 79 Year
  Sex: Female

DRUGS (1)
  1. ARICEPT [Suspect]
     Dosage: ORAL
     Route: 048
     Dates: end: 20060501

REACTIONS (1)
  - APLASTIC ANAEMIA [None]
